FAERS Safety Report 15355878 (Version 1)
Quarter: 2018Q3

REPORT INFORMATION
  Report Type: Spontaneous
  Country: US (occurrence: US)
  Receive Date: 20180830
  Receipt Date: 20180830
  Transmission Date: 20181010
  Serious: Yes (Disabling)
  Sender: FDA-Public Use
  Company Number: None

PATIENT
  Age: 10 Year
  Sex: Male
  Weight: 23.4 kg

DRUGS (4)
  1. COROMEGA OMEGA?3 [Concomitant]
  2. FOCALIN XR [Suspect]
     Active Substance: DEXMETHYLPHENIDATE HYDROCHLORIDE
     Indication: ATTENTION DEFICIT/HYPERACTIVITY DISORDER
     Dosage: ?          QUANTITY:1 CAPSULE(S);?
     Route: 048
     Dates: start: 20180809, end: 20180817
  3. MACRO GREENS [Concomitant]
  4. CHILD LIFE BRAND MULTIVITAMIN [Concomitant]

REACTIONS (4)
  - Tic [None]
  - Rhinorrhoea [None]
  - Throat clearing [None]
  - Quality of life decreased [None]

NARRATIVE: CASE EVENT DATE: 20180812
